FAERS Safety Report 24423203 (Version 1)
Quarter: 2024Q4

REPORT INFORMATION
  Report Type: Spontaneous
  Country: CN (occurrence: CN)
  Receive Date: 20241010
  Receipt Date: 20241010
  Transmission Date: 20250114
  Serious: Yes (Other)
  Sender: ELI LILLY AND CO
  Company Number: CN-Merck Healthcare KGaA-2024052282

PATIENT
  Age: 77 Year
  Sex: Male
  Weight: 55 kg

DRUGS (6)
  1. ERBITUX [Suspect]
     Active Substance: CETUXIMAB
     Indication: Laryngeal cancer
     Dosage: 100 MG, UNKNOWN
     Route: 041
     Dates: start: 20240927, end: 20240927
  2. ESOMEPRAZOLE SODIUM [Suspect]
     Active Substance: ESOMEPRAZOLE SODIUM
     Indication: Prophylaxis
     Dosage: 40 MG, DAILY
     Route: 041
     Dates: start: 20240927, end: 20240927
  3. ONDANSETRON HYDROCHLORIDE [Suspect]
     Active Substance: ONDANSETRON HYDROCHLORIDE
     Indication: Prophylaxis
     Dosage: 8 MG, DAILY
     Route: 065
     Dates: start: 20240927, end: 20240927
  4. SODIUM CHLORIDE [Concomitant]
     Active Substance: SODIUM CHLORIDE
     Indication: Medication dilution
     Dosage: 100 ML, DAILY
     Route: 041
     Dates: start: 20240927, end: 20240927
  5. SODIUM CHLORIDE [Concomitant]
     Active Substance: SODIUM CHLORIDE
     Dosage: 10 ML, DAILY
     Route: 042
     Dates: start: 20240927, end: 20240927
  6. SODIUM CHLORIDE [Concomitant]
     Active Substance: SODIUM CHLORIDE
     Dosage: 250 ML, DAILY
     Route: 041
     Dates: start: 20240927, end: 20240927

REACTIONS (7)
  - Chest discomfort [Recovered/Resolved]
  - Heart rate increased [Recovered/Resolved]
  - Oxygen saturation decreased [Recovered/Resolved]
  - Tachypnoea [Recovered/Resolved]
  - Flushing [Recovered/Resolved]
  - Blood pressure decreased [Recovered/Resolved]
  - Rash pruritic [Recovered/Resolved]

NARRATIVE: CASE EVENT DATE: 20240927
